FAERS Safety Report 9548777 (Version 1)
Quarter: 2013Q3

REPORT INFORMATION
  Report Type: Spontaneous
  Country: US (occurrence: None)
  Receive Date: 20130923
  Receipt Date: 20130923
  Transmission Date: 20140515
  Serious: Yes (Disabling, Other)
  Sender: FDA-Public Use
  Company Number: None

PATIENT
  Age: 45 Day
  Sex: Female
  Weight: 66.23 kg

DRUGS (1)
  1. ESCITALOPRAM [Suspect]
     Indication: MIGRAINE
     Dosage: 1 PILL; ONCE DAILY
     Dates: start: 201203, end: 201209

REACTIONS (10)
  - Product substitution issue [None]
  - Nausea [None]
  - Blood disorder [None]
  - Hypophagia [None]
  - Insomnia [None]
  - Mental disorder [None]
  - Migraine [None]
  - Weight decreased [None]
  - Suicidal ideation [None]
  - Self injurious behaviour [None]
